FAERS Safety Report 5913773-3 (Version None)
Quarter: 2008Q4

REPORT INFORMATION
  Report Type: 
  Country: None (occurrence: None)
  Receive Date: 20081009
  Receipt Date: 20081002
  Transmission Date: 20090506
  Serious: Yes (Hospitalization)
  Sender: FDA-Public Use
  Company Number: SE-ABBOTT-08P-150-0479814-00

PATIENT
  Age: 42 Year
  Sex: Male

DRUGS (13)
  1. ZEMPLAR [Suspect]
     Indication: HYPERPARATHYROIDISM
     Dosage: 5 MCG/ML
     Route: 050
     Dates: start: 20080326
  2. FUROSEMIDE [Concomitant]
     Indication: DIURETIC THERAPY
     Route: 048
     Dates: start: 20070206
  3. FUROSEMIDE [Concomitant]
     Dosage: 10MG/ML
     Route: 042
     Dates: start: 20080922
  4. SODIUM POLYSTYRENE SULFONATE [Concomitant]
     Indication: BLOOD POTASSIUM INCREASED
     Route: 048
     Dates: start: 20080822
  5. LOPERAMIDE HYDROCHLORIDE [Concomitant]
     Indication: DRUG USE FOR UNKNOWN INDICATION
     Route: 048
     Dates: start: 20080623
  6. CINACALCET [Concomitant]
     Indication: BLOOD PARATHYROID HORMONE INCREASED
     Route: 048
     Dates: start: 20080320
  7. ZOLPIDEM TARTRATE [Concomitant]
     Indication: SLEEP DISORDER
     Route: 048
     Dates: start: 20070827
  8. TADALAFIL [Concomitant]
     Indication: ERECTILE DYSFUNCTION
     Route: 048
     Dates: start: 20070625
  9. ACETYLSALICYLIC ACID SRT [Concomitant]
     Indication: THROMBOSIS PROPHYLAXIS
     Route: 048
     Dates: start: 20070528
  10. SEVELAMER [Concomitant]
     Indication: BLOOD PHOSPHORUS INCREASED
     Dosage: 800 MG
     Route: 048
     Dates: start: 20070528
  11. OMEPRAZOLE [Concomitant]
     Indication: GASTROOESOPHAGEAL REFLUX DISEASE
     Route: 048
     Dates: start: 20070206
  12. OMEPRAZOLE [Concomitant]
     Indication: GASTRIC ULCER
  13. SODIUM BICARBONATE [Concomitant]
     Indication: BLOOD PH ABNORMAL
     Route: 048
     Dates: start: 20070206

REACTIONS (3)
  - CHILLS [None]
  - DEVICE RELATED INFECTION [None]
  - NASOPHARYNGITIS [None]
